FAERS Safety Report 7413731-6 (Version None)
Quarter: 2011Q2

REPORT INFORMATION
  Report Type: 
  Country: None (occurrence: None)
  Receive Date: 20110413
  Receipt Date: 20110412
  Transmission Date: 20111010
  Serious: Yes (Other)
  Sender: FDA-Public Use
  Company Number: US-PFIZER INC-2011080739

PATIENT
  Sex: Female
  Weight: 77.098 kg

DRUGS (5)
  1. SYNTHROID [Concomitant]
     Indication: HYPOTHYROIDISM
     Dosage: 175 UNK, UNK
  2. METHOTREXATE SODIUM [Suspect]
     Dosage: UNK
  3. PREDNISONE [Concomitant]
     Dosage: UNK
  4. ADVIL LIQUI-GELS [Concomitant]
     Dosage: UNK
  5. CELEBREX [Suspect]
     Indication: RHEUMATOID ARTHRITIS
     Dosage: 200 MG, DAILY
     Route: 048
     Dates: start: 20050101, end: 20110101

REACTIONS (1)
  - BREAST HAEMORRHAGE [None]
